FAERS Safety Report 6336604-9 (Version None)
Quarter: 2009Q3

REPORT INFORMATION
  Report Type: 
  Country: None (occurrence: None)
  Receive Date: 20090901
  Receipt Date: 20090825
  Transmission Date: 20100115
  Serious: Yes (Other)
  Sender: FDA-Public Use
  Company Number: US-GENENTECH-280369

PATIENT
  Sex: Female
  Weight: 113.6 kg

DRUGS (18)
  1. XOLAIR [Suspect]
     Indication: ASTHMA
     Dosage: 150 MG, Q4W
     Route: 058
     Dates: start: 20071023
  2. ADVAIR HFA [Concomitant]
     Indication: ASTHMA
     Dosage: 1 PUFF, BID
     Route: 048
     Dates: start: 20070101
  3. RHINOCORT [Concomitant]
     Indication: RHINITIS ALLERGIC
     Dosage: 2 UNK, QD
     Route: 045
     Dates: start: 20070101
  4. ATROVENT [Concomitant]
     Indication: RHINITIS ALLERGIC
     Dosage: 10 MG, QD
     Route: 048
     Dates: start: 20080101
  5. KLONOPIN [Concomitant]
     Indication: ANXIETY
     Dosage: 0.5 MG, PRN
     Route: 048
  6. EFFEXOR [Concomitant]
     Indication: DRUG USE FOR UNKNOWN INDICATION
  7. WELLBUTRIN [Concomitant]
     Indication: DRUG USE FOR UNKNOWN INDICATION
  8. DIOVAN HCT [Concomitant]
     Indication: DRUG USE FOR UNKNOWN INDICATION
  9. SIMVASTATIN [Concomitant]
     Indication: DRUG USE FOR UNKNOWN INDICATION
  10. PREDNISONE [Concomitant]
     Indication: DRUG USE FOR UNKNOWN INDICATION
  11. PROVENTIL-HFA [Concomitant]
     Indication: DRUG USE FOR UNKNOWN INDICATION
  12. FLOVENT [Concomitant]
     Indication: DRUG USE FOR UNKNOWN INDICATION
  13. MICRO-K [Concomitant]
     Indication: DRUG USE FOR UNKNOWN INDICATION
  14. SINGULAIR [Concomitant]
     Indication: ASTHMA
     Dosage: 10 MG, QD
     Route: 048
     Dates: start: 20070101
  15. ALBUTEROL [Concomitant]
     Indication: ASTHMA
     Dosage: 4 PUFF, Q6H
     Route: 048
     Dates: start: 20070101
  16. LISINOPRIL [Concomitant]
     Indication: HYPERTENSION
     Dosage: 20 MG, QD
     Route: 048
     Dates: end: 20090501
  17. LIPITOR [Concomitant]
     Indication: HYPERLIPIDAEMIA
     Dosage: 10 MG, QD
     Route: 048
  18. METFORMIN HCL [Concomitant]
     Indication: DIABETES MELLITUS
     Dosage: 500 MG, BID
     Route: 048

REACTIONS (3)
  - HYPERSENSITIVITY [None]
  - THROAT IRRITATION [None]
  - VOMITING [None]
